FAERS Safety Report 8784247 (Version 1)
Quarter: 2012Q4

REPORT INFORMATION
  Report Type: Spontaneous
  Country: US (occurrence: None)
  Receive Date: 20120905
  Receipt Date: 20120905
  Transmission Date: 20130627
  Serious: Yes (Other)
  Sender: FDA-Public Use
  Company Number: None

PATIENT
  Age: 66 Year
  Sex: Male
  Weight: 83.92 kg

DRUGS (1)
  1. AMILORIDE [Suspect]
     Indication: BLOOD PRESSURE HIGH
     Dates: start: 20120501, end: 20120605

REACTIONS (2)
  - Dysgeusia [None]
  - Weight decreased [None]
